FAERS Safety Report 13929223 (Version 1)
Quarter: 2017Q3

REPORT INFORMATION
  Report Type: Spontaneous
  Country: US (occurrence: US)
  Receive Date: 20170901
  Receipt Date: 20170901
  Transmission Date: 20171127
  Serious: No
  Sender: FDA-Public Use
  Company Number: US-ASTRAZENECA-2017SE88295

PATIENT
  Age: 16380 Day
  Sex: Male
  Weight: 122.5 kg

DRUGS (1)
  1. BYDUREON [Suspect]
     Active Substance: EXENATIDE
     Indication: TYPE 2 DIABETES MELLITUS
     Route: 058
     Dates: start: 20170712

REACTIONS (7)
  - Product use issue [Unknown]
  - Injection site pruritus [Unknown]
  - Blood glucose increased [Not Recovered/Not Resolved]
  - Contusion [Recovered/Resolved]
  - Injection site extravasation [Unknown]
  - Injection site mass [Unknown]
  - Injection site erythema [Unknown]

NARRATIVE: CASE EVENT DATE: 20170714
